FAERS Safety Report 9319263 (Version 3)
Quarter: 2013Q3

REPORT INFORMATION
  Report Type: Spontaneous
  Country: US (occurrence: None)
  Receive Date: 20130524
  Receipt Date: 20130827
  Transmission Date: 20140515
  Serious: Yes (Hospitalization, Other)
  Sender: FDA-Public Use
  Company Number: 2012-003317

PATIENT
  Age: 73 Year
  Sex: Female

DRUGS (15)
  1. ACTONEL (RISEDRONATE SODIUM) TABLET, 35MG [Suspect]
     Indication: OSTEOPOROSIS
     Route: 048
     Dates: start: 200202, end: 200604
  2. ACTONEL (RISEDRONATE SODIUM) TABLET, 35MG [Suspect]
     Indication: OSTEOPOROSIS PROPHYLAXIS
     Route: 048
     Dates: start: 200202, end: 200604
  3. ACTONEL (RISEDRONATE SODIUM) TABLET, 35MG [Suspect]
     Route: 048
     Dates: start: 200202, end: 200604
  4. FOSAMAX (ALENDRONATE SODIUM) [Suspect]
     Indication: OSTEOPENIA
     Route: 048
     Dates: start: 200604, end: 201107
  5. ALENDRONATE (ALENDRONATE SODIUM) [Suspect]
     Route: 048
     Dates: end: 201107
  6. LIPITOR (ATORVASTATIN CALCIUM) [Concomitant]
  7. HYZAAR (HYDROCHLOROTHIAZIDE, LOSARTAN POTASSIUM) [Concomitant]
  8. TOPROL (METOPROLOL SUCCINATE) [Concomitant]
  9. DIGITEX (DIGOXIN) [Concomitant]
  10. LUMIGAN (BIMATOPROST) [Concomitant]
  11. ASA (ACETYLSALICYLIC ACID) [Concomitant]
  12. METFORMIN (METFORMIN) [Concomitant]
  13. MULTIVITAMIN  /00097801/ (ASCORBIC ACID, CALCIUM PANTOTHENATE, ERGOCALCIFEROL, NICOTINAMIDE, PYRIDOXINE HYDROCHLORIDE, RETINOL, RIBOFLAVIN, THIAMINE HYDROCHLORIDE) [Concomitant]
  14. VITAMIN E  /00110501/ (TOCOPHEROL) [Concomitant]
  15. VITAMIN C  /00008001/ (ASCORBIC ACID) [Concomitant]

REACTIONS (10)
  - Atypical femur fracture [None]
  - Femur fracture [None]
  - Fall [None]
  - Osteoporotic fracture [None]
  - Pain in extremity [None]
  - Low turnover osteopathy [None]
  - Bone disorder [None]
  - Multiple fractures [None]
  - Pain [None]
  - Fracture displacement [None]
